FAERS Safety Report 9157660 (Version 1)
Quarter: 2013Q1

REPORT INFORMATION
  Report Type: Spontaneous
  Country: IN (occurrence: IN)
  Receive Date: 20130312
  Receipt Date: 20130312
  Transmission Date: 20140127
  Serious: Yes (Death)
  Sender: FDA-Public Use
  Company Number: PHHY2013IN023893

PATIENT
  Sex: Male

DRUGS (1)
  1. PACLITAXEL [Suspect]
     Indication: CHEMOTHERAPY

REACTIONS (2)
  - Febrile neutropenia [Fatal]
  - Diarrhoea [Fatal]
